FAERS Safety Report 6461624-3 (Version None)
Quarter: 2009Q4

REPORT INFORMATION
  Report Type: 
  Country: None (occurrence: None)
  Receive Date: 20091024
  Receipt Date: 20091109
  Transmission Date: 20100525
  Serious: Yes (Hospitalization)
  Sender: FDA-Public Use
  Company Number: 2009AC000064

PATIENT
  Age: 83 Year
  Sex: Male

DRUGS (21)
  1. DIGOXIN [Suspect]
     Dosage: 0.125 MG;PO
     Route: 048
     Dates: start: 20071224, end: 20080607
  2. VESICARE [Concomitant]
  3. DITROPAN [Concomitant]
  4. OXYBUTYNIN CHLORIDE [Concomitant]
  5. ARICEPT [Concomitant]
  6. CLONIDINE [Concomitant]
  7. LEVOTHYROXINE SODIUM [Concomitant]
  8. OMEPRAZOLE [Concomitant]
  9. POTASSIUM CHLORIDE [Concomitant]
  10. TRAMADOL HCL [Concomitant]
  11. WARFARIN SODIUM [Concomitant]
  12. CARBIDOPA [Concomitant]
  13. NITROGLYCERIN [Concomitant]
  14. ARICEPT [Concomitant]
  15. PROMETHAZINE [Concomitant]
  16. CEPHALEXIN [Concomitant]
  17. LISINOPRIL [Concomitant]
  18. SERTRALINE HCL [Concomitant]
  19. HYDROCODONE [Concomitant]
  20. BONIVA [Concomitant]
  21. PENTOXIFYLLINE [Concomitant]

REACTIONS (28)
  - AMNESIA [None]
  - ANHEDONIA [None]
  - ANXIETY [None]
  - ASTHENIA [None]
  - ATRIAL FIBRILLATION [None]
  - BRADYCARDIA [None]
  - COMMUNICATION DISORDER [None]
  - CONCOMITANT DISEASE AGGRAVATED [None]
  - CONTUSION [None]
  - DIARRHOEA [None]
  - ECONOMIC PROBLEM [None]
  - FACE INJURY [None]
  - FALL [None]
  - HYPERTONIC BLADDER [None]
  - HYPOTENSION [None]
  - HYPOVOLAEMIA [None]
  - JOINT INJURY [None]
  - MULTIPLE INJURIES [None]
  - OEDEMA PERIPHERAL [None]
  - OVERDOSE [None]
  - PAIN [None]
  - PARKINSON'S DISEASE [None]
  - QUALITY OF LIFE DECREASED [None]
  - RIB FRACTURE [None]
  - SYNCOPE [None]
  - THERAPEUTIC AGENT TOXICITY [None]
  - UNEVALUABLE EVENT [None]
  - URGE INCONTINENCE [None]
